FAERS Safety Report 6913431-2 (Version None)
Quarter: 2010Q3

REPORT INFORMATION
  Report Type: 
  Country: None (occurrence: None)
  Receive Date: 20100805
  Receipt Date: 20100805
  Transmission Date: 20110219
  Serious: No
  Sender: FDA-Public Use
  Company Number: None

PATIENT
  Age: 63 Year
  Sex: Female
  Weight: 88.905 kg

DRUGS (1)
  1. FENOFIBRATE [Suspect]
     Indication: BLOOD CHOLESTEROL INCREASED
     Dosage: 160 MG 1 TABLET/DAY AT SUPPER ROUND W/ KLX AND 171
     Dates: start: 20100201, end: 20100421

REACTIONS (4)
  - BONE PAIN [None]
  - DYSSTASIA [None]
  - HEADACHE [None]
  - MYALGIA [None]
